FAERS Safety Report 8819055 (Version 1)
Quarter: 2012Q4

REPORT INFORMATION
  Report Type: 
  Country: US (occurrence: None)
  Receive Date: 20121004
  Receipt Date: 20121004
  Transmission Date: 20130627
  Serious: Yes (Hospitalization)
  Sender: FDA-Public Use
  Company Number: None

PATIENT
  Sex: Female
  Weight: 63.5 kg

DRUGS (6)
  1. CYTARABINE [Suspect]
     Dates: end: 20120912
  2. DAUNORUBICIN [Suspect]
     Dates: end: 20120921
  3. METHOTREXATE [Suspect]
     Dates: end: 20120921
  4. PEG-L-ASPARAGINASE (PEGASPARGASE, ONCOSPAR) [Suspect]
     Dates: end: 20120917
  5. PREDNISONE [Suspect]
     Dates: end: 20120926
  6. VINCRISTINE SULFATE [Suspect]
     Dates: end: 20120921

REACTIONS (13)
  - Abdominal pain [None]
  - Diarrhoea [None]
  - Tachycardia [None]
  - Body temperature increased [None]
  - Neutropenia [None]
  - Blood pressure diastolic decreased [None]
  - Anaemia [None]
  - Thrombocytopenia [None]
  - Coagulopathy [None]
  - Septic shock [None]
  - Respiratory distress [None]
  - Renal injury [None]
  - Acidosis [None]
